FAERS Safety Report 18841400 (Version 2)
Quarter: 2021Q1

REPORT INFORMATION
  Report Type: Spontaneous
  Country: US (occurrence: US)
  Receive Date: 20210203
  Receipt Date: 20210305
  Transmission Date: 20210419
  Serious: Yes (Hospitalization, Other)
  Sender: FDA-Public Use
  Company Number: US-GILEAD-2021-0514932

PATIENT
  Age: 65 Year
  Sex: Male
  Weight: 76.19 kg

DRUGS (4)
  1. CLOPIDOGREL [Concomitant]
     Active Substance: CLOPIDOGREL BISULFATE
  2. AMLODIPINE [Concomitant]
     Active Substance: AMLODIPINE BESYLATE
  3. HARVONI [Suspect]
     Active Substance: LEDIPASVIR\SOFOSBUVIR
     Indication: HEPATITIS C
     Dosage: 1 DOSAGE FORM
     Route: 048
     Dates: start: 20210125
  4. ATORVASTATIN [Concomitant]
     Active Substance: ATORVASTATIN

REACTIONS (2)
  - Bradycardia [Not Recovered/Not Resolved]
  - Loss of consciousness [Recovered/Resolved]

NARRATIVE: CASE EVENT DATE: 20210126
